FAERS Safety Report 10848140 (Version 2)
Quarter: 2015Q2

REPORT INFORMATION
  Report Type: Report from Study
  Country: FR (occurrence: FR)
  Receive Date: 20150220
  Receipt Date: 20150406
  Transmission Date: 20150821
  Serious: Yes (Death, Hospitalization, Other)
  Sender: FDA-Public Use
  Company Number: FR-009507513-1501FRA000306

PATIENT
  Age: 69 Year
  Sex: Female
  Weight: 59 kg

DRUGS (4)
  1. CASPOFUNGIN ACETATE [Suspect]
     Active Substance: CASPOFUNGIN ACETATE
     Indication: ANTIFUNGAL TREATMENT
     Dosage: 50 MG, ONCE A DAY
     Route: 042
     Dates: start: 20141227, end: 20141231
  2. PIPERACILLIN [Concomitant]
     Active Substance: PIPERACILLIN
     Indication: PYREXIA
     Dosage: 4 G, TID
     Route: 042
     Dates: start: 20141212, end: 20150118
  3. CASPOFUNGIN ACETATE [Suspect]
     Active Substance: CASPOFUNGIN ACETATE
     Dosage: 50 MG, ONCE A DAY
     Route: 042
     Dates: start: 20150102, end: 20150116
  4. VALACYCLOVIR HYDROCHLORIDE. [Concomitant]
     Active Substance: VALACYCLOVIR HYDROCHLORIDE
     Indication: INFECTION PROPHYLAXIS
     Dosage: 500 MG, TID
     Route: 048
     Dates: start: 20141213

REACTIONS (6)
  - Palmar-plantar erythrodysaesthesia syndrome [Not Recovered/Not Resolved]
  - Malnutrition [Recovering/Resolving]
  - Intestinal obstruction [Not Recovered/Not Resolved]
  - Staphylococcal infection [Recovering/Resolving]
  - Staphylococcal infection [Recovered/Resolved]
  - Multi-organ failure [Fatal]

NARRATIVE: CASE EVENT DATE: 20150101
